FAERS Safety Report 23979925 (Version 5)
Quarter: 2024Q3

REPORT INFORMATION
  Report Type: Spontaneous
  Country: US (occurrence: US)
  Receive Date: 20240617
  Receipt Date: 20240927
  Transmission Date: 20241017
  Serious: No
  Sender: NOVARTIS
  Company Number: US-002147023-NVSC2024US125304

PATIENT
  Age: 26 Year
  Sex: Female
  Weight: 66.667 kg

DRUGS (1)
  1. COSENTYX [Suspect]
     Active Substance: SECUKINUMAB
     Indication: Hidradenitis
     Dosage: 300 MG
     Route: 058
     Dates: start: 20240329

REACTIONS (3)
  - Injection site pain [Unknown]
  - Urinary tract infection [Unknown]
  - Product delivery mechanism issue [Unknown]
